FAERS Safety Report 17412513 (Version 3)
Quarter: 2020Q1

REPORT INFORMATION
  Report Type: Spontaneous
  Country: FR (occurrence: FR)
  Receive Date: 20200213
  Receipt Date: 20200318
  Transmission Date: 20200409
  Serious: Yes (Other)
  Sender: FDA-Public Use
  Company Number: FR-GLAXOSMITHKLINE-FR2020022474

PATIENT
  Sex: Male
  Weight: 78 kg

DRUGS (2)
  1. VENTOLINE [Concomitant]
     Active Substance: ALBUTEROL
     Indication: ASTHMA
     Dosage: UNK UNK, QD (4 TO 6 DAYS)
  2. SERETIDE [Suspect]
     Active Substance: FLUTICASONE PROPIONATE\SALMETEROL XINAFOATE
     Indication: ASTHMA
     Dosage: UNK UNK, BID, (1 TO 2 PER DAY)
     Route: 048
     Dates: start: 2004, end: 202001

REACTIONS (6)
  - Product complaint [Unknown]
  - Retinal neovascularisation [Unknown]
  - Osteonecrosis [Recovering/Resolving]
  - Dysphonia [Unknown]
  - Glaucoma [Unknown]
  - Product use issue [Unknown]

NARRATIVE: CASE EVENT DATE: 2014
